FAERS Safety Report 8976759 (Version 1)
Quarter: 2012Q4

REPORT INFORMATION
  Report Type: 
  Country: US (occurrence: US)
  Receive Date: 20121219
  Receipt Date: 20121219
  Transmission Date: 20130627
  Serious: No
  Sender: FDA-Public Use
  Company Number: US-AMGEN-USASP2012059606

PATIENT
  Age: 60 Year
  Sex: Female

DRUGS (10)
  1. PROLIA [Suspect]
     Indication: OSTEOPOROSIS POSTMENOPAUSAL
     Dosage: 60 mg, q6mo
     Dates: start: 201205
  2. MULTIVITAMIN                       /07504101/ [Concomitant]
     Dosage: UNK
  3. VITAMIN D /00107901/ [Concomitant]
     Dosage: 2000 IU, UNK
  4. VITAMIN D /00107901/ [Concomitant]
     Dosage: 1000 IU, UNK
  5. VITAMIN C                          /00008001/ [Concomitant]
     Dosage: UNK
  6. FISH OIL [Concomitant]
     Dosage: UNK
  7. MAGNESIUM [Concomitant]
     Dosage: UNK
  8. B COMPLEX                          /00212701/ [Concomitant]
     Dosage: UNK
  9. OXYBUTYNIN [Concomitant]
     Dosage: UNK
  10. OSTEO BI-FLEX [Concomitant]
     Dosage: UNK

REACTIONS (2)
  - Tongue blistering [Recovered/Resolved]
  - Tongue eruption [Not Recovered/Not Resolved]
